FAERS Safety Report 24326101 (Version 1)
Quarter: 2024Q3

REPORT INFORMATION
  Report Type: Spontaneous
  Country: US (occurrence: US)
  Receive Date: 20240917
  Receipt Date: 20240917
  Transmission Date: 20241016
  Serious: No
  Sender: CELLTRION
  Company Number: US-CELLTRION INC.-2024US016443

PATIENT

DRUGS (1)
  1. ZYMFENTRA [Suspect]
     Active Substance: INFLIXIMAB-DYYB
     Indication: Product used for unknown indication
     Dosage: UNK
     Dates: start: 20240701

REACTIONS (2)
  - Product delivery mechanism issue [Recovered/Resolved]
  - Treatment delayed [Recovered/Resolved]
